FAERS Safety Report 17144695 (Version 1)
Quarter: 2019Q4

REPORT INFORMATION
  Report Type: Spontaneous
  Country: US (occurrence: US)
  Receive Date: 20191212
  Receipt Date: 20191212
  Transmission Date: 20200122
  Serious: No
  Sender: FDA-Public Use
  Company Number: US-NOVEN PHARMACEUTICALS, INC.-US2019000040

PATIENT

DRUGS (3)
  1. BENADRYL [Concomitant]
     Active Substance: DIPHENHYDRAMINE HYDROCHLORIDE
     Indication: SEASONAL ALLERGY
  2. MINIVELLE [Suspect]
     Active Substance: ESTRADIOL
     Indication: NIGHT SWEATS
  3. MINIVELLE [Suspect]
     Active Substance: ESTRADIOL
     Indication: HOT FLUSH
     Dosage: 0.1 MG, EVERY 5 DAYS
     Route: 062
     Dates: end: 201812

REACTIONS (14)
  - Inappropriate schedule of product administration [Recovered/Resolved]
  - Therapy cessation [Not Recovered/Not Resolved]
  - Anger [Unknown]
  - Confusional state [Unknown]
  - Application site pruritus [Unknown]
  - Application site irritation [Unknown]
  - Irritability [Unknown]
  - Product dose omission [Recovered/Resolved]
  - Application site discolouration [Unknown]
  - Application site erythema [Unknown]
  - Headache [Unknown]
  - Drug withdrawal syndrome [Unknown]
  - Dyspnoea [Unknown]
  - Application site rash [Unknown]

NARRATIVE: CASE EVENT DATE: 201812
